FAERS Safety Report 24051221 (Version 4)
Quarter: 2025Q2

REPORT INFORMATION
  Report Type: Spontaneous
  Country: US (occurrence: US)
  Receive Date: 20240704
  Receipt Date: 20250510
  Transmission Date: 20250716
  Serious: No
  Sender: SANOFI AVENTIS
  Company Number: US-SA-2024SA193443

PATIENT
  Age: 92 Year
  Sex: Female
  Weight: 59.87 kg

DRUGS (36)
  1. DUPIXENT [Suspect]
     Active Substance: DUPILUMAB
     Indication: Neuropathic pruritus
     Dosage: 300 MG, QOW
     Route: 058
  2. DUPIXENT [Suspect]
     Active Substance: DUPILUMAB
     Indication: Dermatitis atopic
  3. DUPIXENT [Suspect]
     Active Substance: DUPILUMAB
     Indication: Neurodermatitis
  4. TRINTELLIX [Suspect]
     Active Substance: VORTIOXETINE HYDROBROMIDE
  5. VITAMIN D3 [Concomitant]
     Active Substance: CHOLECALCIFEROL
  6. MIRALAX [Concomitant]
     Active Substance: POLYETHYLENE GLYCOL 3350
  7. ZINC [Concomitant]
     Active Substance: ZINC
  8. HERBALS\TURMERIC [Concomitant]
     Active Substance: HERBALS\TURMERIC
  9. VITAMIN C [Concomitant]
     Active Substance: ASCORBIC ACID
  10. COENZYME Q10 [Concomitant]
     Active Substance: DIETARY SUPPLEMENT\UBIDECARENONE
  11. XANAX [Concomitant]
     Active Substance: ALPRAZOLAM
  12. ZETIA [Concomitant]
     Active Substance: EZETIMIBE
  13. CLONIDINE HYDROCHLORIDE [Concomitant]
     Active Substance: CLONIDINE HYDROCHLORIDE
  14. SUCRALFATE [Concomitant]
     Active Substance: SUCRALFATE
  15. CHLORTHALIDONE [Concomitant]
     Active Substance: CHLORTHALIDONE
  16. METOPROLOL SUCCINATE [Concomitant]
     Active Substance: METOPROLOL SUCCINATE
  17. BUSPIRONE HCL [Concomitant]
     Active Substance: BUSPIRONE HYDROCHLORIDE
  18. NIFEDIPINE [Concomitant]
     Active Substance: NIFEDIPINE
  19. ATACAND [Concomitant]
     Active Substance: CANDESARTAN CILEXETIL
  20. PRILOSEC OTC [Concomitant]
     Active Substance: OMEPRAZOLE MAGNESIUM
  21. TYLENOL EXTRA STRENGTH [Concomitant]
     Active Substance: ACETAMINOPHEN
  22. SINGULAIR [Concomitant]
     Active Substance: MONTELUKAST SODIUM
  23. NIFEDIPINE [Concomitant]
     Active Substance: NIFEDIPINE
  24. TRAVOPROST [Concomitant]
     Active Substance: TRAVOPROST
  25. ALPHAGAN P [Concomitant]
     Active Substance: BRIMONIDINE TARTRATE
  26. ALPHA LIPOIC ACID [Concomitant]
     Active Substance: .ALPHA.-LIPOIC ACID
  27. DRONABINOL [Concomitant]
     Active Substance: DRONABINOL
  28. MIRTAZAPINE [Concomitant]
     Active Substance: MIRTAZAPINE
  29. AJOVY [Concomitant]
     Active Substance: FREMANEZUMAB-VFRM
  30. FISH OIL [Concomitant]
     Active Substance: FISH OIL
  31. NIFEDIPINE [Concomitant]
     Active Substance: NIFEDIPINE
  32. PRILOSEC [Concomitant]
     Active Substance: OMEPRAZOLE MAGNESIUM
  33. PREGABALIN [Concomitant]
     Active Substance: PREGABALIN
  34. ALFA LIPOIC ACID [Concomitant]
  35. LOSARTAN POTASSIUM [Concomitant]
     Active Substance: LOSARTAN POTASSIUM
  36. CARVEDILOL [Concomitant]
     Active Substance: CARVEDILOL

REACTIONS (8)
  - Depressed mood [Unknown]
  - Headache [Unknown]
  - Pruritus [Unknown]
  - Neuropathic pruritus [Not Recovered/Not Resolved]
  - Therapeutic response shortened [Not Recovered/Not Resolved]
  - Accidental exposure to product [Unknown]
  - Exposure via skin contact [Unknown]
  - Product use in unapproved indication [Unknown]

NARRATIVE: CASE EVENT DATE: 20230101
